FAERS Safety Report 6169453-5 (Version None)
Quarter: 2009Q2

REPORT INFORMATION
  Report Type: 
  Country: None (occurrence: None)
  Receive Date: 20090428
  Receipt Date: 20090421
  Transmission Date: 20091009
  Serious: Yes (Death, Hospitalization)
  Sender: FDA-Public Use
  Company Number: PHHY2009FR12503

PATIENT
  Sex: Male
  Weight: 118 kg

DRUGS (8)
  1. CGP 57148B T35717+ [Suspect]
     Indication: CHRONIC MYELOID LEUKAEMIA
     Dosage: 400 MG/DAY
     Dates: start: 20080910, end: 20081030
  2. DILRENE [Concomitant]
     Dosage: 300 MG DAILY
  3. RENITEC                                 /NET/ [Concomitant]
     Dosage: 10 MG DAILY
  4. ZYLORIC ^FRESENIUS^ [Concomitant]
     Dosage: 100 MG DAILY
  5. LASIX [Concomitant]
     Dosage: 60 MG DAILY
  6. PLAVIX [Concomitant]
     Dosage: 75 MG DAILY
  7. KALEORID [Concomitant]
     Dosage: 600 MG DAILY
  8. ZOCOR [Concomitant]
     Dosage: 10 MG DAILY

REACTIONS (8)
  - ASCITES [None]
  - BREATH SOUNDS ABNORMAL [None]
  - CARDIOMEGALY [None]
  - CREPITATIONS [None]
  - DEATH [None]
  - DYSPNOEA EXERTIONAL [None]
  - GENERALISED OEDEMA [None]
  - OEDEMA PERIPHERAL [None]
